FAERS Safety Report 4987386-4 (Version None)
Quarter: 2006Q2

REPORT INFORMATION
  Report Type: 
  Country: None (occurrence: None)
  Receive Date: 20060501
  Receipt Date: 20050818
  Transmission Date: 20061013
  Serious: Yes (Hospitalization, Disabling)
  Sender: FDA-Public Use
  Company Number: US-MERCK-0508USA03302

PATIENT
  Age: 34 Year
  Sex: Male
  Weight: 82 kg

DRUGS (8)
  1. VIOXX [Suspect]
     Indication: INFLAMMATION
     Route: 048
     Dates: start: 20030910, end: 20040201
  2. VIOXX [Suspect]
     Indication: LIMB INJURY
     Route: 048
     Dates: start: 20030910, end: 20040201
  3. BACLOFEN [Concomitant]
     Route: 065
  4. ZANAFLEX [Concomitant]
     Route: 065
  5. FLOMAX (MORNIFLUMATE) [Concomitant]
     Route: 065
  6. ZOLOFT [Concomitant]
     Route: 065
  7. NEXIUM [Concomitant]
     Route: 065
  8. VITAMINS (UNSPECIFIED) [Concomitant]
     Route: 065

REACTIONS (21)
  - ACTIVATED PARTIAL THROMBOPLASTIN TIME PROLONGED [None]
  - AORTIC DISSECTION [None]
  - ARTERIAL OCCLUSIVE DISEASE [None]
  - ASTHENIA [None]
  - CARDIOVASCULAR DISORDER [None]
  - CEREBROSPINAL FISTULA [None]
  - DEPRESSION [None]
  - EMBOLISM [None]
  - FAECAL INCONTINENCE [None]
  - HYPOAESTHESIA [None]
  - INTRACRANIAL HYPOTENSION [None]
  - ISCHAEMIC STROKE [None]
  - LIMB INJURY [None]
  - MUSCLE SPASMS [None]
  - POST PROCEDURAL COMPLICATION [None]
  - PROSTATITIS [None]
  - SEROMA [None]
  - SPINAL CORD COMPRESSION [None]
  - SPINAL CORD ISCHAEMIA [None]
  - URINARY INCONTINENCE [None]
  - WOUND DEHISCENCE [None]
